FAERS Safety Report 15737641 (Version 1)
Quarter: 2018Q4

REPORT INFORMATION
  Report Type: Spontaneous
  Country: US (occurrence: US)
  Receive Date: 20181219
  Receipt Date: 20181219
  Transmission Date: 20190205
  Serious: Yes (Hospitalization)
  Sender: FDA-Public Use
  Company Number: US-ROCHE-2232342

PATIENT
  Sex: Female

DRUGS (11)
  1. ESBRIET [Suspect]
     Active Substance: PIRFENIDONE
     Indication: IDIOPATHIC PULMONARY FIBROSIS
     Route: 048
     Dates: start: 201601
  2. ESTRADIOL. [Concomitant]
     Active Substance: ESTRADIOL
  3. BUMETANIDE. [Concomitant]
     Active Substance: BUMETANIDE
  4. ATOVAQUONE. [Concomitant]
     Active Substance: ATOVAQUONE
  5. FOLIC ACID. [Concomitant]
     Active Substance: FOLIC ACID
  6. CLARITIN [Concomitant]
     Active Substance: LORATADINE
  7. IMDUR [Concomitant]
     Active Substance: ISOSORBIDE MONONITRATE
  8. NORVASC [Concomitant]
     Active Substance: AMLODIPINE BESYLATE
  9. SYMBICORT [Concomitant]
     Active Substance: BUDESONIDE\FORMOTEROL FUMARATE DIHYDRATE
  10. SENNA [Concomitant]
     Active Substance: SENNA LEAF\SENNOSIDES\SENNOSIDES A AND B
     Dosage: PROMT
     Route: 065
  11. PREDNISONE. [Concomitant]
     Active Substance: PREDNISONE

REACTIONS (1)
  - Cough [Unknown]
